FAERS Safety Report 9306163 (Version 2)
Quarter: 2013Q2

REPORT INFORMATION
  Report Type: Report from Study
  Country: FR (occurrence: FR)
  Receive Date: 20130523
  Receipt Date: 20130607
  Transmission Date: 20140414
  Serious: No
  Sender: FDA-Public Use
  Company Number: FR-JNJFOC-20130502264

PATIENT
  Age: 22 Year
  Sex: Male
  Weight: 75 kg

DRUGS (7)
  1. USTEKINUMAB [Suspect]
     Indication: CROHN^S DISEASE
     Dates: start: 20120402
  2. USTEKINUMAB [Suspect]
     Indication: CROHN^S DISEASE
     Dates: start: 20120918
  3. DELURSAN [Concomitant]
     Indication: CHOLANGITIS SCLEROSING
     Route: 048
  4. METHOTREXATE [Concomitant]
     Indication: CROHN^S DISEASE
     Route: 058
  5. SPECIAFOLDINE [Concomitant]
     Indication: CROHN^S DISEASE
     Route: 048
  6. CORTANCYL [Concomitant]
     Indication: CROHN^S DISEASE
     Route: 048
     Dates: start: 20121226
  7. CALCIUM ACETATE [Concomitant]
     Route: 048
     Dates: start: 20130116

REACTIONS (1)
  - Visual acuity reduced [Not Recovered/Not Resolved]
